FAERS Safety Report 7281827-8 (Version None)
Quarter: 2011Q1

REPORT INFORMATION
  Report Type: 
  Country: None (occurrence: None)
  Receive Date: 20110208
  Receipt Date: 20110201
  Transmission Date: 20110831
  Serious: Yes (Other)
  Sender: FDA-Public Use
  Company Number: JP-PFIZER INC-2010176768

PATIENT
  Age: 85 Year
  Sex: Male
  Weight: 63.5 kg

DRUGS (16)
  1. FINIBAX [Concomitant]
  2. BLOPRESS [Concomitant]
  3. ZYLORIC ^GLAXO WELLCOME^ [Concomitant]
  4. CRESTOR [Concomitant]
  5. LASIX [Concomitant]
  6. MAGNESIUM OXIDE [Concomitant]
  7. WARFARIN [Concomitant]
  8. AVOLVE [Concomitant]
  9. TAMSULOSIN HCL [Concomitant]
  10. BEPRICOR [Concomitant]
  11. ARTIST [Concomitant]
  12. SOLITA T [Concomitant]
  13. TAKEPRON [Concomitant]
  14. URITOS [Concomitant]
  15. ZYVOX [Suspect]
     Indication: PNEUMONIA
     Dosage: 600 MG, 2X/DAY
     Route: 041
     Dates: start: 20101214, end: 20101221
  16. DEPAS [Concomitant]

REACTIONS (1)
  - HYPONATRAEMIA [None]
